FAERS Safety Report 9014179 (Version 1)
Quarter: 2013Q1

REPORT INFORMATION
  Report Type: Spontaneous
  Country: GB (occurrence: GB)
  Receive Date: 20130115
  Receipt Date: 20130115
  Transmission Date: 20140127
  Serious: Yes (Hospitalization)
  Sender: FDA-Public Use
  Company Number: PHHY2013GB002689

PATIENT
  Age: 49 Year
  Sex: Female
  Weight: 88.8 kg

DRUGS (2)
  1. OXALIPLATIN [Suspect]
     Route: 042
     Dates: start: 20130102, end: 20130102
  2. CALCIUM FOLINATE [Suspect]
     Route: 042
     Dates: start: 20130102, end: 20130102

REACTIONS (2)
  - Cold sweat [Recovered/Resolved]
  - Chills [Recovered/Resolved]
